FAERS Safety Report 10419344 (Version 2)
Quarter: 2014Q3

REPORT INFORMATION
  Report Type: Spontaneous
  Country: US (occurrence: None)
  Receive Date: 20140701
  Receipt Date: 20140926
  Transmission Date: 20150326
  Serious: No
  Sender: FDA-Public Use
  Company Number: 1000060405

PATIENT
  Age: 70 Year
  Sex: Female

DRUGS (8)
  1. COLACE [Concomitant]
     Active Substance: DOCUSATE SODIUM
  2. LINZESS [Suspect]
     Active Substance: LINACLOTIDE
     Indication: NEUROPATHY PERIPHERAL
     Dosage: 145 MCG (145 MCG, 1 IN 1 D)
     Route: 048
     Dates: start: 20140304
  3. GABAPENTIN. [Concomitant]
     Active Substance: GABAPENTIN
  4. MILK OF MAGNESIA (MAGNESIUM HYDROXIDE) [Concomitant]
  5. FAMOTIDINE. [Concomitant]
     Active Substance: FAMOTIDINE
  6. ENALAPRIL [Concomitant]
     Active Substance: ENALAPRIL
  7. HYDROCODONE [Concomitant]
     Active Substance: HYDROCODONE
  8. VALIUM [Concomitant]
     Active Substance: DIAZEPAM

REACTIONS (10)
  - Diarrhoea [None]
  - Drug effect increased [None]
  - Anorectal discomfort [None]
  - Chills [None]
  - Off label use [None]
  - Pruritus [None]
  - Nausea [None]
  - Paraesthesia [None]
  - Abdominal pain [None]
  - Drug ineffective for unapproved indication [None]

NARRATIVE: CASE EVENT DATE: 20140304
